FAERS Safety Report 25699495 (Version 1)
Quarter: 2025Q3

REPORT INFORMATION
  Report Type: Spontaneous
  Country: US (occurrence: US)
  Receive Date: 20250819
  Receipt Date: 20250819
  Transmission Date: 20251021
  Serious: Yes (Other)
  Sender: UPSHER SMITH LABORATORIES
  Company Number: US-UPSHER-SMITH LABORATORIES, LLC-20250801082

PATIENT
  Age: 45 Year
  Sex: Male

DRUGS (1)
  1. FLUPHENAZINE HYDROCHLORIDE [Suspect]
     Active Substance: FLUPHENAZINE HYDROCHLORIDE
     Indication: Schizophrenia
     Route: 065

REACTIONS (2)
  - Pulmonary hypertension [Unknown]
  - Cardiac disorder [Unknown]
